FAERS Safety Report 6582131-3 (Version None)
Quarter: 2010Q1

REPORT INFORMATION
  Report Type: 
  Country: None (occurrence: None)
  Receive Date: 20100216
  Receipt Date: 20100204
  Transmission Date: 20100710
  Serious: Yes (Other)
  Sender: FDA-Public Use
  Company Number: US-BAYER-201013439NA

PATIENT
  Age: 22 Year
  Sex: Female

DRUGS (2)
  1. MIRENA [Suspect]
     Indication: CONTRACEPTION
     Route: 015
     Dates: start: 20080801
  2. UNKNOWN DRUG [Concomitant]
     Indication: INFECTION
     Route: 065

REACTIONS (5)
  - BACK PAIN [None]
  - INFECTION [None]
  - MASS [None]
  - MEDICAL DEVICE COMPLICATION [None]
  - NAUSEA [None]
